FAERS Safety Report 6519059-0 (Version None)
Quarter: 2009Q4

REPORT INFORMATION
  Report Type: 
  Country: None (occurrence: None)
  Receive Date: 20091228
  Receipt Date: 20091125
  Transmission Date: 20100525
  Serious: No
  Sender: FDA-Public Use
  Company Number: US-BAYER-200941017NA

PATIENT
  Age: 52 Year
  Sex: Male

DRUGS (3)
  1. LEVITRA [Suspect]
     Indication: DRUG USE FOR UNKNOWN INDICATION
     Dosage: FOR AT LEAST A YEAR NOS
  2. LEVITRA [Suspect]
     Dosage: UNIT DOSE: 20 MG
     Dates: start: 20091120
  3. LEVITRA [Suspect]
     Dosage: UNIT DOSE: 20 MG
     Dates: start: 20091121

REACTIONS (1)
  - ADVERSE EVENT [None]
